FAERS Safety Report 24591059 (Version 5)
Quarter: 2025Q3

REPORT INFORMATION
  Report Type: Report from Study
  Country: US (occurrence: US)
  Receive Date: 20241107
  Receipt Date: 20250702
  Transmission Date: 20251021
  Serious: Yes (Hospitalization)
  Sender: ABBVIE
  Company Number: US-ABBVIE-5991546

PATIENT
  Age: 67 Year
  Sex: Male

DRUGS (1)
  1. SKYRIZI [Suspect]
     Active Substance: RISANKIZUMAB-RZAA
     Indication: Psoriasis
     Route: 058
     Dates: start: 20210421

REACTIONS (12)
  - Bronchitis chronic [Unknown]
  - Dyspnoea [Unknown]
  - Pneumonia [Unknown]
  - Medical device site pain [Unknown]
  - Chronic obstructive pulmonary disease [Unknown]
  - Emphysema [Unknown]
  - Heart rate decreased [Unknown]
  - Head injury [Unknown]
  - Road traffic accident [Unknown]
  - Neck pain [Unknown]
  - Spondylitis [Unknown]
  - Back pain [Unknown]

NARRATIVE: CASE EVENT DATE: 20241029
